FAERS Safety Report 6220282-3 (Version None)
Quarter: 2009Q2

REPORT INFORMATION
  Report Type: 
  Country: None (occurrence: None)
  Receive Date: 20090604
  Receipt Date: 20090521
  Transmission Date: 20091009
  Serious: Yes (Other)
  Sender: FDA-Public Use
  Company Number: 2009-192290-NL

PATIENT
  Age: 88 Year
  Sex: Male
  Weight: 73 kg

DRUGS (5)
  1. TICE BCG [Suspect]
     Dosage: CFU INTRAVESICAL
     Route: 043
  2. LISINOPRIL [Concomitant]
  3. ASPIRIN [Concomitant]
  4. COSOPT [Concomitant]
  5. XALATAN [Concomitant]

REACTIONS (1)
  - SKIN ULCER [None]
